FAERS Safety Report 6812051-8 (Version None)
Quarter: 2010Q3

REPORT INFORMATION
  Report Type: 
  Country: None (occurrence: None)
  Receive Date: 20100701
  Receipt Date: 20100618
  Transmission Date: 20110219
  Serious: Yes (Other)
  Sender: FDA-Public Use
  Company Number: PHHY2010US36579

PATIENT
  Sex: Female
  Weight: 51.2 kg

DRUGS (6)
  1. EXJADE [Suspect]
     Indication: ANAEMIA
     Dosage: 1000 MG, QD
     Route: 048
     Dates: start: 20070727
  2. EXJADE [Suspect]
     Indication: IRON OVERLOAD
     Dosage: 1000 MG
     Route: 048
     Dates: start: 20091218, end: 20100410
  3. ALLOPURINOL [Concomitant]
     Dosage: 100 MG DAILY
     Route: 048
  4. COLCHICINE [Concomitant]
     Dosage: 0.6 MG DAILY
     Route: 048
  5. METOPROLOL TARTRATE [Concomitant]
     Dosage: 50 MG DAILY
  6. LISINOPRIL [Concomitant]
     Dosage: 5 MG, DAILY

REACTIONS (7)
  - DRY SKIN [None]
  - HAEMORRHAGE SUBCUTANEOUS [None]
  - PAIN OF SKIN [None]
  - PRURITUS [None]
  - RASH [None]
  - RASH GENERALISED [None]
  - SKIN LESION [None]
